FAERS Safety Report 6401932-5 (Version None)
Quarter: 2009Q4

REPORT INFORMATION
  Report Type: 
  Country: None (occurrence: None)
  Receive Date: 20091015
  Receipt Date: 20091005
  Transmission Date: 20100525
  Serious: Yes (Life-Threatening, Hospitalization)
  Sender: FDA-Public Use
  Company Number: A0808126A

PATIENT
  Sex: Male
  Weight: 92.7 kg

DRUGS (11)
  1. KIVEXA [Suspect]
     Indication: HIV INFECTION
     Route: 048
     Dates: start: 20090201, end: 20090901
  2. VIRAMUNE [Concomitant]
     Indication: HIV INFECTION
     Dosage: 2TAB PER DAY
     Route: 065
     Dates: start: 20090201
  3. ALTACE [Concomitant]
     Dosage: 2.5MG PER DAY
     Route: 065
     Dates: start: 20090201
  4. CRESTOR [Concomitant]
     Dosage: 20MG PER DAY
     Route: 065
     Dates: start: 20090201
  5. LIPIDIL [Concomitant]
     Dosage: 200MG PER DAY
     Route: 065
     Dates: start: 20090201
  6. METFORMIN HYDROCHLORIDE [Concomitant]
     Indication: DRUG USE FOR UNKNOWN INDICATION
     Route: 065
  7. TRIZIVIR [Concomitant]
     Route: 065
  8. MARIJUANA [Concomitant]
     Route: 065
  9. COCAINE [Concomitant]
     Route: 065
  10. ACYCLOVIR [Concomitant]
     Route: 065
  11. INSULIN [Concomitant]
     Route: 065

REACTIONS (12)
  - ACUTE CORONARY SYNDROME [None]
  - ANGIOPLASTY [None]
  - ARTERIOGRAM CORONARY [None]
  - BLOOD CREATINE PHOSPHOKINASE INCREASED [None]
  - CHEST DISCOMFORT [None]
  - CHEST PAIN [None]
  - COAGULOPATHY [None]
  - CORONARY ARTERY DISEASE [None]
  - CORONARY ARTERY STENOSIS [None]
  - DYSPNOEA [None]
  - HYPERHIDROSIS [None]
  - MYOCARDIAL INFARCTION [None]
